FAERS Safety Report 7557524-8 (Version None)
Quarter: 2011Q2

REPORT INFORMATION
  Report Type: 
  Country: None (occurrence: None)
  Receive Date: 20110610
  Receipt Date: 20110527
  Transmission Date: 20111010
  Serious: Yes (Disabling, Other)
  Sender: FDA-Public Use
  Company Number: 2011MA006526

PATIENT
  Sex: Female

DRUGS (1)
  1. METOCLOPRAMIDE [Suspect]
     Dates: start: 20051201, end: 20090101

REACTIONS (9)
  - EXTRAPYRAMIDAL DISORDER [None]
  - DISABILITY [None]
  - ACTIVITIES OF DAILY LIVING IMPAIRED [None]
  - PAIN [None]
  - TARDIVE DYSKINESIA [None]
  - MENTAL DISORDER [None]
  - EMOTIONAL DISTRESS [None]
  - QUALITY OF LIFE DECREASED [None]
  - MOVEMENT DISORDER [None]
